FAERS Safety Report 10561142 (Version 1)
Quarter: 2014Q4

REPORT INFORMATION
  Report Type: Spontaneous
  Country: US (occurrence: US)
  Receive Date: 20141103
  Receipt Date: 20141103
  Transmission Date: 20150529
  Serious: No
  Sender: FDA-Public Use
  Company Number: US-GLAXOSMITHKLINE-US2014GSK015021

PATIENT
  Age: 42 Year
  Sex: Female

DRUGS (5)
  1. COZAAR [Concomitant]
     Active Substance: LOSARTAN POTASSIUM
  2. METOPROLOL TARTRATE. [Concomitant]
     Active Substance: METOPROLOL TARTRATE
  3. BENLYSTA [Suspect]
     Active Substance: BELIMUMAB
     Indication: SYSTEMIC LUPUS ERYTHEMATOSUS
     Dosage: UNK, CYC
     Route: 042
     Dates: start: 201303
  4. NORVASC [Concomitant]
     Active Substance: AMLODIPINE BESYLATE
  5. SODIUM CHLORIDE. [Suspect]
     Active Substance: SODIUM CHLORIDE
     Indication: PRODUCT USED FOR UNKNOWN INDICATION

REACTIONS (2)
  - Blood pressure increased [Recovered/Resolved]
  - Incorrect drug dosage form administered [Recovered/Resolved]

NARRATIVE: CASE EVENT DATE: 20140930
